FAERS Safety Report 8857247 (Version 1)
Quarter: 2012Q4

REPORT INFORMATION
  Report Type: 
  Country: US (occurrence: US)
  Receive Date: 20121024
  Receipt Date: 20121024
  Transmission Date: 20130627
  Serious: No
  Sender: FDA-Public Use
  Company Number: US-B.I. PHARMACEUTICALS,INC./RIDGEFIELD-2012-BP-25981BP

PATIENT
  Sex: Female

DRUGS (3)
  1. TRADJENTA [Suspect]
     Route: 048
  2. LANTUS SOLOSTAR [Suspect]
     Dosage: 15 U
     Route: 058
     Dates: start: 20120925
  3. INSULIN [Suspect]
     Route: 065

REACTIONS (4)
  - Blood glucose increased [Not Recovered/Not Resolved]
  - Drug ineffective [Unknown]
  - Hyposomnia [Unknown]
  - Sleep disorder [Unknown]
